FAERS Safety Report 12077781 (Version 1)
Quarter: 2016Q1

REPORT INFORMATION
  Report Type: Report from Study
  Country: GB (occurrence: GB)
  Receive Date: 20160215
  Receipt Date: 20160215
  Transmission Date: 20160526
  Serious: Yes (Hospitalization)
  Sender: FDA-Public Use
  Company Number: PHHO2015GB017063

PATIENT
  Age: 66 Year
  Sex: Female
  Weight: 78.9 kg

DRUGS (34)
  1. COMPARATOR BENDAMUSTINE [Suspect]
     Active Substance: BENDAMUSTINE
     Indication: CHRONIC LYMPHOCYTIC LEUKAEMIA
     Dosage: 130 MG, UNK
     Route: 042
     Dates: start: 20150505
  2. PARACETAMOL [Concomitant]
     Active Substance: ACETAMINOPHEN
     Indication: CHRONIC LYMPHOCYTIC LEUKAEMIA
  3. METOCLOPRAMIDE. [Concomitant]
     Active Substance: METOCLOPRAMIDE
     Indication: CHRONIC LYMPHOCYTIC LEUKAEMIA
     Dosage: 10 MG, UNK
     Route: 048
     Dates: start: 20150505
  4. SENNA [Concomitant]
     Active Substance: SENNA LEAF\SENNOSIDES\SENNOSIDES A AND B
     Indication: CONSTIPATION
     Dosage: 2 DF, QD
     Route: 048
     Dates: start: 20150517, end: 20150517
  5. CIPROFLOXACIN. [Concomitant]
     Active Substance: CIPROFLOXACIN
     Dosage: 500 MG, BID
     Route: 048
     Dates: start: 20150731
  6. SERETIDE 500 [Concomitant]
     Indication: ASTHMA
     Dosage: 1 DF, BID
     Route: 055
     Dates: start: 20000615
  7. RABEPRAZOLE [Concomitant]
     Active Substance: RABEPRAZOLE
     Indication: GASTROOESOPHAGEAL REFLUX DISEASE
     Dosage: 20 MG, QD
     Route: 048
     Dates: start: 20141115
  8. NYSTATIN. [Concomitant]
     Active Substance: NYSTATIN
     Indication: ORAL CANDIDIASIS
     Dosage: 1 ML, QID
     Route: 048
     Dates: start: 20150731
  9. XAILIN FRESH [Concomitant]
     Indication: PRODUCT USED FOR UNKNOWN INDICATION
     Dosage: 1 DF, QD AND AT NIGHT TIME
     Route: 047
     Dates: start: 20150506
  10. BECLOMETASONE [Concomitant]
     Active Substance: BECLOMETHASONE DIPROPIONATE
     Indication: RHINITIS ALLERGIC
     Dosage: 1 DF, BID
     Route: 045
  11. BLINDED IDELALISIB [Suspect]
     Active Substance: IDELALISIB
     Indication: CHRONIC LYMPHOCYTIC LEUKAEMIA
     Dosage: CODE NOT BROKEN
     Route: 048
     Dates: start: 20150505
  12. BLINDED NO TREATMENT RECEIVED [Suspect]
     Active Substance: INVESTIGATIONAL PRODUCT
     Indication: CHRONIC LYMPHOCYTIC LEUKAEMIA
     Dosage: CODE NOT BROKEN
     Route: 048
     Dates: start: 20150505
  13. BLINDED PLACEBO [Suspect]
     Active Substance: INVESTIGATIONAL PRODUCT
     Indication: CHRONIC LYMPHOCYTIC LEUKAEMIA
     Dosage: CODE NOT BROKEN
     Route: 048
     Dates: start: 20150505
  14. CHLORPHENIRAMINE. [Concomitant]
     Active Substance: CHLORPHENIRAMINE
     Indication: CHRONIC LYMPHOCYTIC LEUKAEMIA
     Dosage: 10 MG, UNK
     Route: 042
     Dates: start: 20150505
  15. CHLORPHENIRAMINE. [Concomitant]
     Active Substance: CHLORPHENIRAMINE
     Dosage: 4 MG, PRN
     Route: 048
     Dates: start: 20150713
  16. GENTAMICIN. [Concomitant]
     Active Substance: GENTAMICIN
     Indication: SEPSIS
     Dosage: 210 MG, QD
     Route: 042
     Dates: start: 20150710, end: 20150713
  17. TEICOPLANIN [Concomitant]
     Active Substance: TEICOPLANIN
     Indication: SEPSIS
     Dosage: 600 MG, BID
     Route: 042
     Dates: start: 20150709, end: 20150713
  18. ONDANSETRON [Concomitant]
     Active Substance: ONDANSETRON
     Dosage: 4 MG, TID
     Route: 048
     Dates: start: 20150505, end: 20150515
  19. HYDROCORTISONE. [Concomitant]
     Active Substance: HYDROCORTISONE
     Indication: CHRONIC LYMPHOCYTIC LEUKAEMIA
     Dosage: 100 MG, UNK
     Route: 042
     Dates: start: 20150505
  20. ALLOPURINOL. [Concomitant]
     Active Substance: ALLOPURINOL
     Indication: CHRONIC LYMPHOCYTIC LEUKAEMIA
     Dosage: 300 MG, UNK
     Route: 048
     Dates: start: 20150505, end: 20150517
  21. ACICLOVIR [Concomitant]
     Active Substance: ACYCLOVIR
     Indication: CHRONIC LYMPHOCYTIC LEUKAEMIA
     Dosage: 400 MG, UNK
     Route: 048
     Dates: start: 20150505
  22. GENTAMICIN. [Concomitant]
     Active Substance: GENTAMICIN
     Dosage: 225 MG, QD
     Route: 042
     Dates: start: 20150730, end: 20150730
  23. PIRITON [Concomitant]
     Active Substance: CHLORPHENIRAMINE MALEATE
     Indication: PRODUCT USED FOR UNKNOWN INDICATION
     Dosage: 10 MG, QD
     Route: 042
     Dates: start: 20150730, end: 20150730
  24. DOCUSATE [Concomitant]
     Active Substance: DOCUSATE
     Indication: CONSTIPATION
     Dosage: 200 MG, QD
     Route: 048
     Dates: start: 20150710
  25. PARACETAMOL [Concomitant]
     Active Substance: ACETAMINOPHEN
     Indication: HEADACHE
  26. CHLORPHENIRAMINE. [Concomitant]
     Active Substance: CHLORPHENIRAMINE
     Indication: RASH
     Dosage: 10 MG, PRN
     Route: 042
     Dates: start: 20150713, end: 20150713
  27. G-CSF [Concomitant]
     Active Substance: GRANULOCYTE COLONY-STIMULATING FACTOR NOS
     Indication: CHRONIC LYMPHOCYTIC LEUKAEMIA
     Dosage: 300 MG, UNK
     Route: 058
     Dates: start: 20150714, end: 20150714
  28. OFATUMUMAB [Suspect]
     Active Substance: OFATUMUMAB
     Indication: CHRONIC LYMPHOCYTIC LEUKAEMIA
     Dosage: 1000 MG, UNK
     Route: 042
     Dates: start: 20150505
  29. PARACETAMOL [Concomitant]
     Active Substance: ACETAMINOPHEN
     Indication: ARTHRITIS
     Dosage: 1000 MG, UNK
     Route: 048
     Dates: start: 20150505
  30. COTRIMOXAZOLE [Concomitant]
     Active Substance: SULFAMETHOXAZOLE\TRIMETHOPRIM
     Indication: CHRONIC LYMPHOCYTIC LEUKAEMIA
     Dosage: 480 MG, UNK
     Route: 048
     Dates: start: 20150505, end: 20150518
  31. CIPROFLOXACIN. [Concomitant]
     Active Substance: CIPROFLOXACIN
     Indication: SEPSIS
     Dosage: 400 MG, TID
     Route: 042
     Dates: start: 20150709, end: 20150713
  32. ONDANSETRON [Concomitant]
     Active Substance: ONDANSETRON
     Indication: NAUSEA
     Dosage: 4 MG, TID
     Route: 048
     Dates: start: 20140915, end: 20150315
  33. LAXIDO [Concomitant]
     Active Substance: POLYETHYLENE GLYCOL 3350\POTASSIUM CHLORIDE\SODIUM BICARBONATE\SODIUM CHLORIDE
     Indication: CONSTIPATION
     Dosage: 2 DF, BID
     Route: 048
     Dates: start: 20150710
  34. FRAGMIN [Concomitant]
     Active Substance: DALTEPARIN SODIUM
     Indication: THROMBOSIS PROPHYLAXIS
     Dosage: 5000 UG, QD
     Route: 058
     Dates: start: 20150505, end: 20150512

REACTIONS (3)
  - Pyrexia [Recovered/Resolved]
  - Pyrexia [Recovered/Resolved]
  - Pyrexia [Recovered/Resolved with Sequelae]

NARRATIVE: CASE EVENT DATE: 20150516
